FAERS Safety Report 5255329-4 (Version None)
Quarter: 2007Q1

REPORT INFORMATION
  Report Type: 
  Country: None (occurrence: None)
  Receive Date: 20070305
  Receipt Date: 20070228
  Transmission Date: 20070707
  Serious: Yes (Hospitalization)
  Sender: FDA-Public Use
  Company Number: FR-GLAXOSMITHKLINE-B0460147A

PATIENT
  Age: 42 Year
  Sex: Male
  Weight: 113 kg

DRUGS (4)
  1. KIVEXA [Suspect]
     Indication: HIV INFECTION
     Route: 048
     Dates: start: 20070110, end: 20070203
  2. BACTRIM [Suspect]
     Route: 048
     Dates: start: 20070110, end: 20070203
  3. REYATAZ [Concomitant]
     Indication: HIV INFECTION
     Route: 065
     Dates: start: 20070110
  4. NORVIR [Concomitant]
     Indication: HIV INFECTION
     Route: 065
     Dates: start: 20070110

REACTIONS (8)
  - ARTHRALGIA [None]
  - BLOOD CREATININE INCREASED [None]
  - CHILLS [None]
  - DRUG HYPERSENSITIVITY [None]
  - FACE OEDEMA [None]
  - PYREXIA [None]
  - RASH GENERALISED [None]
  - RENAL FAILURE ACUTE [None]
